FAERS Safety Report 4739897-4 (Version None)
Quarter: 2005Q3

REPORT INFORMATION
  Report Type: 
  Country: None (occurrence: None)
  Receive Date: 20050810
  Receipt Date: 20011107
  Transmission Date: 20060218
  Serious: No
  Sender: FDA-Public Use
  Company Number: US-GLAXOSMITHKLINE-A0355814A

PATIENT
  Age: 48 Year
  Sex: Female
  Weight: 54.42 kg

DRUGS (7)
  1. PAXIL [Suspect]
     Indication: DEPRESSION
     Dosage: 2.5MG PER DAY
     Route: 048
     Dates: start: 20010601
  2. PAXIL [Suspect]
     Dosage: 5MG PER DAY
     Route: 048
     Dates: start: 20010601
  3. PAXIL [Suspect]
     Dosage: 10MG PER DAY
     Route: 048
     Dates: start: 20010601
  4. PAXIL [Suspect]
     Dosage: 20MG PER DAY
     Route: 048
     Dates: start: 20010601
  5. PAXIL [Suspect]
     Dosage: 30MG PER DAY
     Route: 048
     Dates: start: 20010101, end: 20010601
  6. PAXIL [Suspect]
     Dosage: 20MG PER DAY
     Route: 048
     Dates: start: 20001101, end: 20010101
  7. DYAZIDE [Concomitant]
     Indication: CARPAL TUNNEL SYNDROME
     Dosage: 30MG PER DAY
     Route: 048
     Dates: start: 19860101

REACTIONS (18)
  - ANOREXIA [None]
  - ANXIETY [None]
  - APHASIA [None]
  - COORDINATION ABNORMAL [None]
  - CRYING [None]
  - DISORIENTATION [None]
  - DISTURBANCE IN ATTENTION [None]
  - DIZZINESS [None]
  - DRUG WITHDRAWAL SYNDROME [None]
  - DYSPHEMIA [None]
  - HEADACHE [None]
  - INSOMNIA [None]
  - NAUSEA [None]
  - NIGHT SWEATS [None]
  - PARAESTHESIA [None]
  - PHARYNGOLARYNGEAL PAIN [None]
  - VERTIGO [None]
  - VISUAL ACUITY REDUCED [None]
